FAERS Safety Report 5100536-4 (Version None)
Quarter: 2006Q3

REPORT INFORMATION
  Report Type: 
  Country: None (occurrence: None)
  Receive Date: 20060907
  Receipt Date: 20060907
  Transmission Date: 20061208
  Serious: Yes (Hospitalization)
  Sender: FDA-Public Use
  Company Number: None

PATIENT
  Age: 48 Year
  Sex: Male
  Weight: 92 kg

DRUGS (3)
  1. DAPTOMYCIN CUBIST [Suspect]
     Indication: LIGAMENT OPERATION
     Dosage: Q24H IV
     Route: 042
     Dates: start: 20060824, end: 20060825
  2. DAPTOMYCIN CUBIST [Suspect]
     Indication: POSTOPERATIVE INFECTION
     Dosage: Q24H IV
     Route: 042
     Dates: start: 20060824, end: 20060825
  3. VANCOMYCIN [Concomitant]

REACTIONS (8)
  - EYE SWELLING [None]
  - MOUTH ULCERATION [None]
  - PALLOR [None]
  - PHARYNGOLARYNGEAL PAIN [None]
  - PRURITUS [None]
  - RASH ERYTHEMATOUS [None]
  - RASH MACULAR [None]
  - SKIN EXFOLIATION [None]
